FAERS Safety Report 9972422 (Version 1)
Quarter: 2014Q1

REPORT INFORMATION
  Report Type: Spontaneous
  Country: US (occurrence: None)
  Receive Date: 20140305
  Receipt Date: 20140305
  Transmission Date: 20141002
  Serious: Yes (Other)
  Sender: FDA-Public Use
  Company Number: None

PATIENT
  Age: 45 Year
  Sex: Female
  Weight: 67.59 kg

DRUGS (1)
  1. MIRENA IUD [Suspect]
     Indication: MENORRHAGIA
     Dates: start: 20130930, end: 20131111

REACTIONS (10)
  - Haemorrhage [None]
  - Paraesthesia [None]
  - Abdominal discomfort [None]
  - Influenza like illness [None]
  - Arthropathy [None]
  - Arthritis [None]
  - Insomnia [None]
  - Night sweats [None]
  - Musculoskeletal pain [None]
  - Muscle tightness [None]
